FAERS Safety Report 8417853-2 (Version None)
Quarter: 2012Q2

REPORT INFORMATION
  Report Type: 
  Country: None (occurrence: None)
  Receive Date: 20120607
  Receipt Date: 20120601
  Transmission Date: 20120825
  Serious: No
  Sender: FDA-Public Use
  Company Number: US-PFIZER INC-2012094246

PATIENT
  Sex: Female
  Weight: 82 kg

DRUGS (1)
  1. RELPAX [Suspect]
     Indication: MIGRAINE PROPHYLAXIS
     Dosage: 20 MG, 2X/DAY
     Route: 048
     Dates: start: 20120413

REACTIONS (1)
  - DRUG EFFECT DECREASED [None]
